FAERS Safety Report 14309075 (Version 12)
Quarter: 2023Q1

REPORT INFORMATION
  Report Type: Spontaneous
  Country: GB (occurrence: GB)
  Receive Date: 20171220
  Receipt Date: 20230310
  Transmission Date: 20230418
  Serious: Yes (Other)
  Sender: FDA-Public Use
  Company Number: GB-AUROBINDO-AUR-APL-2017-46452

PATIENT
  Age: 17 Year
  Sex: Female
  Weight: 57 kg

DRUGS (35)
  1. ONDANSETRON [Suspect]
     Active Substance: ONDANSETRON
     Indication: Product used for unknown indication
     Dosage: 8 MILLIGRAM, PRN
     Route: 065
  2. ACTINOMYCIN D [Suspect]
     Active Substance: DACTINOMYCIN
     Indication: Desmoplastic small round cell tumour
     Dosage: 4 CYCLES ; CYCLICAL
     Route: 042
  3. ACTINOMYCIN D [Suspect]
     Active Substance: DACTINOMYCIN
     Dosage: UNK, CYCLICAL,( IVA 5 CYCLE)
     Route: 042
  4. DOXORUBICIN HYDROCHLORIDE [Suspect]
     Active Substance: DOXORUBICIN HYDROCHLORIDE
     Indication: Desmoplastic small round cell tumour
     Dosage: UNK
     Route: 065
  5. CYCLOPHOSPHAMIDE [Suspect]
     Active Substance: CYCLOPHOSPHAMIDE
     Indication: Desmoplastic small round cell tumour
     Dosage: UNK,(3 LINES OF CHEMOTHERAPY)
     Route: 065
  6. CYCLOPHOSPHAMIDE [Suspect]
     Active Substance: CYCLOPHOSPHAMIDE
     Indication: Malignant neoplasm progression
     Dosage: UNK,(4 LINES OF CHEMOTHERAPY)
     Route: 065
  7. DOCETAXEL [Suspect]
     Active Substance: DOCETAXEL
     Indication: Desmoplastic small round cell tumour
     Dosage: UNK,(THREE LINES OF CHEMOTHERAPY)
     Route: 065
  8. DOCETAXEL [Suspect]
     Active Substance: DOCETAXEL
     Indication: Malignant neoplasm progression
  9. DOXORUBICIN [Suspect]
     Active Substance: DOXORUBICIN
     Indication: Desmoplastic small round cell tumour
     Dosage: 1 INTERNATIONAL UNIT,(1 UNIT, 4 CYCLES ; CYCLICAL ())
     Route: 065
  10. DACTINOMYCIN [Suspect]
     Active Substance: DACTINOMYCIN
     Indication: Desmoplastic small round cell tumour
     Dosage: UNK, CYCLICAL,(4 CYCLES ; CYCLICAL )
     Route: 065
  11. DACTINOMYCIN [Suspect]
     Active Substance: DACTINOMYCIN
     Dosage: UNK, CYCLICAL CYCLES 5 ; CYCLICAL
     Route: 065
  12. GEMCITABINE [Suspect]
     Active Substance: GEMCITABINE
     Indication: Desmoplastic small round cell tumour
     Dosage: UNK (3 LINES OF CHEMOTHERAPY)
     Route: 065
  13. GEMCITABINE [Suspect]
     Active Substance: GEMCITABINE
     Indication: Malignant neoplasm progression
  14. IFOSFAMIDE [Suspect]
     Active Substance: IFOSFAMIDE
     Indication: Desmoplastic small round cell tumour
     Dosage: 1 UNIT, FIVE CYCLES ; CYCLICAL
     Route: 065
  15. IFOSFAMIDE [Suspect]
     Active Substance: IFOSFAMIDE
     Dosage: UNKUNK (1 IU )
     Route: 065
  16. IFOSFAMIDE [Suspect]
     Active Substance: IFOSFAMIDE
     Dosage: 1 INTERNATIONAL UNIT, CYCLICAL,(1 UNIT, FOUR CYCLES ; CYCLICAL)
     Route: 065
  17. IRINOTECAN [Suspect]
     Active Substance: IRINOTECAN
     Indication: Desmoplastic small round cell tumour
     Dosage: 3 LINES OF CHEMOTHERAPY (LIPOSOMAL)
     Route: 065
  18. IRINOTECAN [Suspect]
     Active Substance: IRINOTECAN
     Indication: Malignant neoplasm progression
  19. SULFAMETHOXAZOLE\TRIMETHOPRIM [Suspect]
     Active Substance: SULFAMETHOXAZOLE\TRIMETHOPRIM
     Indication: Product used for unknown indication
     Dosage: 480 MG, BID, SATURDAY AND SUNDAY
     Route: 065
  20. SULFAMETHOXAZOLE\TRIMETHOPRIM [Suspect]
     Active Substance: SULFAMETHOXAZOLE\TRIMETHOPRIM
     Dosage: 960 MILLIGRAM,(480 MG, BID, SATURDAY AND SUNDAY)
     Route: 065
     Dates: start: 2016
  21. TEMOZOLOMIDE [Suspect]
     Active Substance: TEMOZOLOMIDE
     Indication: Desmoplastic small round cell tumour
     Dosage: UNK (3 LINES OF CHEMOTHERAPY)
     Route: 065
  22. TEMOZOLOMIDE [Suspect]
     Active Substance: TEMOZOLOMIDE
     Indication: Malignant neoplasm progression
  23. TOPOTECAN [Suspect]
     Active Substance: TOPOTECAN HYDROCHLORIDE
     Indication: Desmoplastic small round cell tumour
     Dosage: UNK,(3 LINES OF CHEMOTHERAPY)
     Route: 065
  24. TOPOTECAN [Suspect]
     Active Substance: TOPOTECAN HYDROCHLORIDE
     Indication: Malignant neoplasm progression
  25. VINORELBINE [Suspect]
     Active Substance: VINORELBINE TARTRATE
     Indication: Desmoplastic small round cell tumour
     Dosage: 1 INTERNATIONAL UNIT, CYCLICAL
     Route: 065
  26. VINORELBINE [Suspect]
     Active Substance: VINORELBINE TARTRATE
     Indication: Malignant neoplasm progression
     Dosage: 1 INTERNATIONAL UNIT, CYCLICAL,4 CYCLES (1 IU, CYCLE 4 CYCLES, CYCLICAL )
     Route: 065
  27. VINCRISTINE [Suspect]
     Active Substance: VINCRISTINE
     Indication: Desmoplastic small round cell tumour
     Dosage: 1 UNIT, FIVE CYCLES, THREE LINES OF CHEMOTHERAPY
     Route: 042
  28. VINCRISTINE [Suspect]
     Active Substance: VINCRISTINE
     Indication: Malignant neoplasm progression
     Dosage: 1 INTERNATIONAL UNIT, CYCLICAL,1 UNIT, 4 CYCLES; CYCLICAL
     Route: 042
  29. VINCRISTINE [Suspect]
     Active Substance: VINCRISTINE
     Dosage: 1 INTERNATIONAL UNIT, CYCLICAL,(1 INTERNATIONAL UNIT, CYCLE)
     Route: 042
  30. CYCLIZINE [Suspect]
     Active Substance: CYCLIZINE
     Indication: Product used for unknown indication
     Dosage: 50 MG, PRN
     Route: 065
  31. CYCLIZINE [Suspect]
     Active Substance: CYCLIZINE
     Dosage: UNK
     Route: 065
  32. MELATONIN [Suspect]
     Active Substance: MELATONIN
     Indication: Product used for unknown indication
     Dosage: 6 MILLIGRAM, ONCE A DAY,(6 MG, QD)
     Route: 065
     Dates: start: 2016
  33. PAZOPANIB HYDROCHLORIDE [Concomitant]
     Active Substance: PAZOPANIB HYDROCHLORIDE
     Indication: Product used for unknown indication
     Dosage: UNK
     Route: 065
  34. ONIVYDE [Suspect]
     Active Substance: IRINOTECAN HYDROCHLORIDE
     Indication: Desmoplastic small round cell tumour
     Dosage: UNK,(UNK (3 LINES OF CHEMOTHERAPY)
     Route: 065
  35. ONIVYDE [Suspect]
     Active Substance: IRINOTECAN HYDROCHLORIDE
     Indication: Malignant neoplasm progression

REACTIONS (11)
  - Desmoplastic small round cell tumour [Unknown]
  - Malignant neoplasm progression [Unknown]
  - Ascites [Recovering/Resolving]
  - Metastases to peritoneum [Unknown]
  - Metastases to lymph nodes [Unknown]
  - Metastases to liver [Unknown]
  - Drug ineffective [Unknown]
  - Disease progression [Unknown]
  - Off label use [Unknown]
  - Therapeutic product effect incomplete [Unknown]
  - Product use in unapproved indication [Unknown]

NARRATIVE: CASE EVENT DATE: 20170101
